FAERS Safety Report 12631902 (Version 2)
Quarter: 2016Q3

REPORT INFORMATION
  Report Type: Spontaneous
  Country: US (occurrence: US)
  Receive Date: 20160808
  Receipt Date: 20160808
  Transmission Date: 20161109
  Serious: No
  Sender: FDA-Public Use
  Company Number: US-BEH-2016061388

PATIENT
  Sex: Female
  Weight: 103 kg

DRUGS (36)
  1. HIZENTRA [Suspect]
     Active Substance: HUMAN IMMUNOGLOBULIN G
     Route: 058
  2. ATORVASTATIN [Concomitant]
     Active Substance: ATORVASTATIN
  3. NEXIUM [Concomitant]
     Active Substance: ESOMEPRAZOLE MAGNESIUM
  4. ROPINIROLE. [Concomitant]
     Active Substance: ROPINIROLE
  5. FOLIC ACID. [Concomitant]
     Active Substance: FOLIC ACID
  6. GAS-X [Concomitant]
     Active Substance: DIMETHICONE
  7. LEVOTHYROXINE. [Concomitant]
     Active Substance: LEVOTHYROXINE
  8. CEPHALEXIN. [Concomitant]
     Active Substance: CEPHALEXIN
  9. PLAQUENIL [Concomitant]
     Active Substance: HYDROXYCHLOROQUINE SULFATE
  10. VENTOLIN [Concomitant]
     Active Substance: ALBUTEROL SULFATE
  11. HIZENTRA [Suspect]
     Active Substance: HUMAN IMMUNOGLOBULIN G
     Route: 058
  12. CALCIUM/MAGNESIUM/ZINC [Concomitant]
  13. PULMICORT TURBUHALER [Concomitant]
     Active Substance: BUDESONIDE
  14. COMPLETE MULTIVITAMIN [Concomitant]
     Active Substance: VITAMINS
  15. VITAMIN B COMPLEX [Concomitant]
     Active Substance: CYANOCOBALAMIN\DEXPANTHENOL\NIACINAMIDE\PYRIDOXINE HYDROCHLORIDE\RIBOFLAVIN 5^-PHOSPHATE SODIUM\THIAMINE HYDROCHLORIDE\VITAMIN B COMPLEX
  16. POTASSIUM CHLORIDE. [Concomitant]
     Active Substance: POTASSIUM CHLORIDE
  17. SULFASALAZINE. [Concomitant]
     Active Substance: SULFASALAZINE
  18. FISH OIL [Concomitant]
     Active Substance: FISH OIL
  19. METHOTREXATE. [Concomitant]
     Active Substance: METHOTREXATE
  20. LISINOPRIL. [Concomitant]
     Active Substance: LISINOPRIL
  21. HIZENTRA [Suspect]
     Active Substance: HUMAN IMMUNOGLOBULIN G
     Indication: IMMUNODEFICIENCY COMMON VARIABLE
     Route: 058
  22. EPIPEN [Concomitant]
     Active Substance: EPINEPHRINE
  23. GLUCOSAMINE-CHONDR [Concomitant]
  24. DAYPRO [Concomitant]
     Active Substance: OXAPROZIN
  25. MINOCYCLINE [Concomitant]
     Active Substance: MINOCYCLINE\MINOCYCLINE HYDROCHLORIDE
  26. TRIFLURIDINE. [Concomitant]
     Active Substance: TRIFLURIDINE
  27. ALENDRONATE [Concomitant]
     Active Substance: ALENDRONATE SODIUM
  28. FLECTOR [Concomitant]
     Active Substance: DICLOFENAC EPOLAMINE
  29. VITAMIN D [Concomitant]
     Active Substance: CHOLECALCIFEROL
  30. CYMBALTA [Concomitant]
     Active Substance: DULOXETINE HYDROCHLORIDE
  31. NEURONTIN [Concomitant]
     Active Substance: GABAPENTIN
  32. DIPHENHYDRAMINE. [Concomitant]
     Active Substance: DIPHENHYDRAMINE
  33. ATENOLOL. [Concomitant]
     Active Substance: ATENOLOL
  34. TYLENOL EX-STR [Concomitant]
  35. TRAMADOL. [Concomitant]
     Active Substance: TRAMADOL
  36. CLONAZEPAM. [Concomitant]
     Active Substance: CLONAZEPAM

REACTIONS (1)
  - Herpes zoster [Unknown]
